FAERS Safety Report 8586585-2 (Version None)
Quarter: 2012Q3

REPORT INFORMATION
  Report Type: 
  Country: None (occurrence: None)
  Receive Date: 20120810
  Receipt Date: 20120801
  Transmission Date: 20120928
  Serious: Yes (Hospitalization)
  Sender: FDA-Public Use
  Company Number: KR-JNJFOC-20111001165

PATIENT
  Sex: Female
  Weight: 48.3 kg

DRUGS (23)
  1. PLACEBO [Suspect]
     Indication: RHEUMATOID ARTHRITIS
     Route: 042
     Dates: start: 20110809
  2. ARMODAFINIL [Suspect]
     Indication: PNEUMONIA
     Route: 048
     Dates: start: 20111011, end: 20111011
  3. METHYLPREDNISOLONE [Concomitant]
     Route: 048
     Dates: start: 20110926, end: 20110927
  4. ADCAL [Concomitant]
     Indication: OSTEOPOROSIS
     Route: 048
     Dates: start: 20080911
  5. ULTRACET [Concomitant]
     Route: 048
     Dates: start: 20101006, end: 20111014
  6. CELEBREX [Concomitant]
     Indication: RHEUMATOID ARTHRITIS
     Route: 048
     Dates: start: 20111109, end: 20120305
  7. MUCOSTA [Concomitant]
     Route: 048
     Dates: start: 20081020, end: 20111014
  8. GOLIMUMAB [Suspect]
     Indication: RHEUMATOID ARTHRITIS
     Route: 042
     Dates: start: 20110809
  9. PLACEBO [Suspect]
     Route: 042
     Dates: start: 20100813
  10. METHYLON [Concomitant]
     Indication: RHEUMATOID ARTHRITIS
     Route: 048
     Dates: start: 20080922
  11. ACTONEL [Concomitant]
     Indication: OSTEOPOROSIS
     Route: 048
     Dates: start: 20080911
  12. MUCOSTA [Concomitant]
     Route: 048
     Dates: start: 20111015
  13. CELEBREX [Concomitant]
     Route: 048
     Dates: start: 20111014, end: 20111108
  14. GOLIMUMAB [Suspect]
     Route: 042
     Dates: start: 20100813
  15. MUCOSTA [Concomitant]
     Indication: GASTROINTESTINAL DISORDER THERAPY
     Route: 048
     Dates: start: 20111015
  16. ULTRACET [Concomitant]
     Indication: PAIN MANAGEMENT
     Route: 048
     Dates: start: 20111015
  17. ARMODAFINIL [Suspect]
     Route: 048
     Dates: start: 20111012
  18. MUCOSTA [Concomitant]
     Indication: GASTRITIS
     Route: 048
     Dates: start: 20081020, end: 20111014
  19. ULTRACET [Concomitant]
     Indication: RHEUMATOID ARTHRITIS
     Route: 048
     Dates: start: 20111015
  20. CURAN [Concomitant]
     Indication: GASTRITIS
     Route: 048
     Dates: start: 20080911, end: 20111024
  21. BONALING A (DIMENHYDRINATE) [Concomitant]
     Indication: DIZZINESS
     Route: 048
     Dates: start: 20081020, end: 20111015
  22. ULTRACET [Concomitant]
     Route: 048
     Dates: start: 20101006, end: 20111014
  23. FOLIC ACID [Concomitant]
     Indication: PROPHYLAXIS
     Route: 048
     Dates: start: 20080911

REACTIONS (3)
  - HYPONATRAEMIA [None]
  - PNEUMONIA CRYPTOCOCCAL [None]
  - VOMITING [None]
